FAERS Safety Report 9434012 (Version 1)
Quarter: 2013Q3

REPORT INFORMATION
  Report Type: Spontaneous
  Country: US (occurrence: US)
  Receive Date: 20130801
  Receipt Date: 20130801
  Transmission Date: 20140515
  Serious: Yes (Hospitalization)
  Sender: FDA-Public Use
  Company Number: US-BIOGENIDEC-2013BI069346

PATIENT
  Age: 43 Year
  Sex: Female

DRUGS (2)
  1. AVONEX [Suspect]
     Indication: MULTIPLE SCLEROSIS
     Route: 030
     Dates: start: 20041007, end: 20050401
  2. AVONEX [Suspect]
     Indication: MULTIPLE SCLEROSIS
     Route: 030
     Dates: start: 20121215

REACTIONS (10)
  - Blood potassium decreased [Recovered/Resolved]
  - ECG P wave inverted [Unknown]
  - Cardiomegaly [Unknown]
  - Chest pain [Recovered/Resolved]
  - Dizziness [Recovered/Resolved]
  - Gastrooesophageal reflux disease [Recovered/Resolved]
  - Back pain [Recovered/Resolved]
  - Pyrexia [Recovered/Resolved]
  - Pain [Recovered/Resolved]
  - Neck pain [Recovered/Resolved]
